FAERS Safety Report 18277094 (Version 1)
Quarter: 2020Q3

REPORT INFORMATION
  Report Type: Spontaneous
  Country: US (occurrence: US)
  Receive Date: 20200917
  Receipt Date: 20200917
  Transmission Date: 20201103
  Serious: No
  Sender: FDA-Public Use
  Company Number: US-ALLERGAN-2015252US

PATIENT
  Sex: Female
  Weight: 62.6 kg

DRUGS (5)
  1. SUCRALFATE ? BP [Suspect]
     Active Substance: SUCRALFATE
     Indication: PRODUCT USED FOR UNKNOWN INDICATION
     Dosage: UNK, PRN
     Route: 065
  2. ATENOLOL. [Suspect]
     Active Substance: ATENOLOL
     Indication: PRODUCT USED FOR UNKNOWN INDICATION
     Dosage: 25 MG, QD
     Route: 065
  3. CRESTOR [Suspect]
     Active Substance: ROSUVASTATIN CALCIUM
     Indication: PRODUCT USED FOR UNKNOWN INDICATION
     Dosage: 10 MG
     Route: 048
  4. NEXIUM [Suspect]
     Active Substance: ESOMEPRAZOLE MAGNESIUM
     Indication: GASTROOESOPHAGEAL REFLUX DISEASE
     Dosage: 40 MG, QD
     Route: 048
  5. HYDROCHLOROTH [Suspect]
     Active Substance: HYDROCHLOROTHIAZIDE
     Indication: BLOOD PRESSURE MEASUREMENT
     Dosage: 5 MG

REACTIONS (9)
  - Sleep disorder [Not Recovered/Not Resolved]
  - Lip swelling [Unknown]
  - Glossodynia [Not Recovered/Not Resolved]
  - Drug hypersensitivity [Unknown]
  - Back pain [Unknown]
  - Gastric disorder [Not Recovered/Not Resolved]
  - Hiatus hernia [Unknown]
  - Swollen tongue [Unknown]
  - Therapeutic product effect decreased [Unknown]
